FAERS Safety Report 12617331 (Version 1)
Quarter: 2016Q3

REPORT INFORMATION
  Report Type: Report from Study
  Country: US (occurrence: US)
  Receive Date: 20160803
  Receipt Date: 20160803
  Transmission Date: 20161109
  Serious: No
  Sender: FDA-Public Use
  Company Number: US-009507513-1607USA010499

PATIENT

DRUGS (1)
  1. NOXAFIL [Suspect]
     Active Substance: POSACONAZOLE
     Dosage: 600 MG (6 TABLETS) PER DAY
     Route: 048

REACTIONS (2)
  - No adverse event [Unknown]
  - Prescribed overdose [Unknown]
